FAERS Safety Report 9847204 (Version 2)
Quarter: 2014Q1

REPORT INFORMATION
  Report Type: Spontaneous
  Country: US (occurrence: US)
  Receive Date: 20140127
  Receipt Date: 20140213
  Transmission Date: 20141002
  Serious: Yes (Death, Other)
  Sender: FDA-Public Use
  Company Number: US-PFIZER INC-2014024545

PATIENT
  Age: 47 Year
  Sex: Male

DRUGS (5)
  1. VENLAFAXINE HCL [Suspect]
     Indication: DEPRESSION
     Dosage: 47.5 MG, DAILY
     Route: 048
     Dates: start: 20140117
  2. VENLAFAXINE HCL [Suspect]
     Dosage: 37.5 MG, UNK
     Route: 048
     Dates: start: 20140117
  3. SIMVASTATIN [Concomitant]
     Indication: BLOOD CHOLESTEROL ABNORMAL
     Dosage: 20 MG, DAILY
     Route: 048
  4. METFORMIN [Concomitant]
     Dosage: 500 MG, UNK
  5. MULTIVITE [Suspect]
     Dosage: UNK

REACTIONS (4)
  - Completed suicide [Fatal]
  - Suicidal ideation [Unknown]
  - Drug ineffective [Unknown]
  - Malaise [Unknown]
